FAERS Safety Report 18172328 (Version 2)
Quarter: 2020Q3

REPORT INFORMATION
  Report Type: Spontaneous
  Country: US (occurrence: US)
  Receive Date: 20200819
  Receipt Date: 20200825
  Transmission Date: 20201103
  Serious: Yes (Other)
  Sender: FDA-Public Use
  Company Number: NVSC2020US223498

PATIENT
  Sex: Female
  Weight: 74.84 kg

DRUGS (2)
  1. TEGRETOL [Suspect]
     Active Substance: CARBAMAZEPINE
     Indication: PRODUCT USED FOR UNKNOWN INDICATION
     Dosage: UNK
     Route: 065
  2. DILANTIN [Suspect]
     Active Substance: PHENYTOIN
     Indication: EPILEPSY
     Dosage: 100 MG(ONE IN THE MORNING TWO AT NIGHT)
     Route: 065

REACTIONS (11)
  - Petit mal epilepsy [Unknown]
  - Nausea [Unknown]
  - Drug ineffective [Unknown]
  - Seizure [Unknown]
  - Generalised tonic-clonic seizure [Unknown]
  - Vomiting [Unknown]
  - Disturbance in attention [Unknown]
  - Amnesia [Unknown]
  - Eye pain [Unknown]
  - Visual impairment [Unknown]
  - Illness [Unknown]
